FAERS Safety Report 5241557-0 (Version None)
Quarter: 2007Q1

REPORT INFORMATION
  Report Type: 
  Country: None (occurrence: None)
  Receive Date: 20070220
  Receipt Date: 20070131
  Transmission Date: 20070707
  Serious: Yes (Hospitalization)
  Sender: FDA-Public Use
  Company Number: AT-BRISTOL-MYERS SQUIBB COMPANY-13678339

PATIENT

DRUGS (4)
  1. CETUXIMAB [Suspect]
     Indication: COLON CANCER STAGE III
     Route: 042
     Dates: start: 20060824, end: 20060824
  2. OXALIPLATIN [Suspect]
     Indication: COLON CANCER STAGE III
     Route: 042
     Dates: start: 20060824
  3. FLUOROURACIL [Suspect]
     Indication: COLON CANCER STAGE III
     Route: 042
     Dates: start: 20060824
  4. LEUCOVORIN CALCIUM [Suspect]
     Indication: COLON CANCER STAGE III
     Route: 042
     Dates: start: 20060824

REACTIONS (1)
  - RENAL ABSCESS [None]
